FAERS Safety Report 14830943 (Version 1)
Quarter: 2018Q2

REPORT INFORMATION
  Report Type: Spontaneous
  Country: DK (occurrence: DK)
  Receive Date: 20180430
  Receipt Date: 20180430
  Transmission Date: 20180711
  Serious: Yes (Hospitalization)
  Sender: FDA-Public Use
  Company Number: PHHY2018DK075518

PATIENT
  Age: 47 Year
  Sex: Female

DRUGS (4)
  1. LOSARTAN BLUEFISH [Concomitant]
     Active Substance: LOSARTAN
     Indication: HYPERTENSION
     Dosage: 50 MG, UNK
     Route: 048
     Dates: start: 20161107
  2. BUVENTOL [Concomitant]
     Indication: ASTHMA
     Dosage: 1 DF, UNK (SUCTION AS NEEDED BY SEIZURE, STRENGTH: 200 MICROGRAMS / DOSE)
     Route: 055
  3. METFORMIN [Suspect]
     Active Substance: METFORMIN HYDROCHLORIDE
     Indication: DIABETES MELLITUS
     Dosage: 1000 MG, UNK
     Route: 048
     Dates: start: 20130313, end: 20171022
  4. BUFOMIX [Concomitant]
     Indication: ASTHMA
     Dosage: 2 DF, UNK (STRENGTH: 4.5 + 160 MICROG / DOSE)
     Route: 055
     Dates: start: 20160108

REACTIONS (3)
  - Hypoxia [Unknown]
  - Chest pain [Unknown]
  - Interstitial lung disease [Not Recovered/Not Resolved]

NARRATIVE: CASE EVENT DATE: 201710
